FAERS Safety Report 7645887-4 (Version None)
Quarter: 2011Q3

REPORT INFORMATION
  Report Type: 
  Country: None (occurrence: None)
  Receive Date: 20110729
  Receipt Date: 20110725
  Transmission Date: 20111222
  Serious: Yes (Death, Congenital Anomaly)
  Sender: FDA-Public Use
  Company Number: FR-GILEAD-2011-0042207

PATIENT
  Sex: Female

DRUGS (2)
  1. KALETRA [Suspect]
     Indication: HIV INFECTION
     Route: 064
     Dates: end: 20090620
  2. TRUVADA [Suspect]
     Indication: HIV INFECTION
     Route: 064
     Dates: end: 20090620

REACTIONS (3)
  - SPINA BIFIDA [None]
  - FOETAL MALFORMATION [None]
  - UNEVALUABLE EVENT [None]
